FAERS Safety Report 7817441-2 (Version None)
Quarter: 2011Q4

REPORT INFORMATION
  Report Type: 
  Country: None (occurrence: None)
  Receive Date: 20111017
  Receipt Date: 20111003
  Transmission Date: 20120403
  Serious: No
  Sender: FDA-Public Use
  Company Number: US-B.I. PHARMACEUTICALS,INC./RIDGEFIELD-2011-BP-23420BP

PATIENT
  Sex: Female

DRUGS (12)
  1. ACTIQ [Concomitant]
     Indication: PAIN
     Route: 048
  2. FISH OIL [Concomitant]
     Indication: SUPPLEMENTATION THERAPY
     Route: 048
  3. VITAMIN D [Concomitant]
     Indication: SUPPLEMENTATION THERAPY
     Route: 048
  4. SPIRIVA [Suspect]
     Indication: DYSPNOEA
     Dosage: 18 MCG
     Route: 055
     Dates: start: 20110708, end: 20110831
  5. SPIRONOLACTONE [Concomitant]
     Indication: RENAL DISORDER
     Route: 048
  6. CALCIUM CARBONATE [Concomitant]
     Indication: OSTEOPOROSIS
  7. FENTANYL-100 [Concomitant]
     Indication: PAIN
     Route: 061
  8. AMBIEN [Concomitant]
     Indication: INSOMNIA
  9. ADVAIR DISKUS 100/50 [Concomitant]
     Indication: DYSPNOEA
  10. FOLIC ACID [Concomitant]
     Indication: SUPPLEMENTATION THERAPY
  11. TOPROL-XL [Concomitant]
     Indication: ATRIAL FIBRILLATION
     Route: 048
  12. MAGNESIUM [Concomitant]
     Indication: SUPPLEMENTATION THERAPY
     Route: 048

REACTIONS (1)
  - AGEUSIA [None]
